FAERS Safety Report 22096937 (Version 3)
Quarter: 2023Q1

REPORT INFORMATION
  Report Type: Spontaneous
  Country: US (occurrence: US)
  Receive Date: 20230315
  Receipt Date: 20230317
  Transmission Date: 20230417
  Serious: Yes (Other)
  Sender: FDA-Public Use
  Company Number: US-PFIZER INC-202300107144

PATIENT
  Age: 34 Year
  Sex: Female
  Weight: 74.84 kg

DRUGS (1)
  1. METHYLPREDNISOLONE [Suspect]
     Active Substance: METHYLPREDNISOLONE
     Indication: Tooth disorder
     Dosage: UNK (TAPER DOSE AS DIRECTED BY MOUTH)
     Route: 048
     Dates: start: 20230309

REACTIONS (5)
  - Condition aggravated [Not Recovered/Not Resolved]
  - Coeliac disease [Not Recovered/Not Resolved]
  - Off label use [Unknown]
  - Muscle spasms [Not Recovered/Not Resolved]
  - Diarrhoea [Not Recovered/Not Resolved]

NARRATIVE: CASE EVENT DATE: 20230309
